FAERS Safety Report 4908401-X (Version None)
Quarter: 2006Q1

REPORT INFORMATION
  Report Type: 
  Country: None (occurrence: None)
  Receive Date: 20060210
  Receipt Date: 20040121
  Transmission Date: 20060701
  Serious: No
  Sender: FDA-Public Use
  Company Number: US-GLAXOSMITHKLINE-A0494505A

PATIENT
  Age: 76 Year
  Sex: Female

DRUGS (2)
  1. PAXIL CR [Suspect]
     Indication: DEPRESSION
     Dosage: 12.5MG PER DAY
     Route: 048
     Dates: start: 20050101, end: 20050914
  2. KLONOPIN [Concomitant]

REACTIONS (3)
  - TENSION HEADACHE [None]
  - TINNITUS [None]
  - TREMOR [None]
